FAERS Safety Report 9780692 (Version 2)
Quarter: 2014Q1

REPORT INFORMATION
  Report Type: Report from Study
  Country: KR (occurrence: KR)
  Receive Date: 20131224
  Receipt Date: 20140116
  Transmission Date: 20141002
  Serious: Yes (Hospitalization)
  Sender: FDA-Public Use
  Company Number: KR-JNJFOC-20131210893

PATIENT
  Age: 15 Year
  Sex: Male
  Weight: 59.6 kg

DRUGS (12)
  1. AZATHIOPRINE [Concomitant]
     Indication: CROHN^S DISEASE
     Route: 048
     Dates: start: 20131213
  2. CENTRUM (MINERALS NOS, VITAMINS NOS) [Concomitant]
     Indication: PROPHYLAXIS
     Route: 048
     Dates: start: 20130131
  3. PENIRAMIN [Concomitant]
     Indication: ANTIALLERGIC THERAPY
     Route: 042
     Dates: start: 20130910, end: 20130910
  4. PENIRAMIN [Concomitant]
     Indication: ANTIALLERGIC THERAPY
     Route: 042
     Dates: start: 20130521, end: 20130521
  5. PENIRAMIN [Concomitant]
     Indication: ANTIALLERGIC THERAPY
     Route: 042
     Dates: start: 20130314, end: 20130314
  6. CURAN [Concomitant]
     Indication: PROPHYLAXIS AGAINST GASTROINTESTINAL ULCER
     Route: 042
     Dates: start: 20131210, end: 20131213
  7. KETAMINE [Concomitant]
     Indication: ANAESTHESIA
     Route: 042
     Dates: start: 20131213, end: 20131213
  8. COLOLYT [Concomitant]
     Route: 065
     Dates: start: 20131213, end: 20131213
  9. MIDAZOLAM [Concomitant]
     Route: 042
     Dates: start: 20131213, end: 20131213
  10. DEXTROSE [Concomitant]
     Indication: ACID BASE BALANCE
     Route: 042
     Dates: start: 20131210
  11. REMICADE [Suspect]
     Indication: CROHN^S DISEASE
     Route: 042
     Dates: start: 20130314, end: 20130910
  12. PENTASA [Concomitant]
     Indication: CROHN^S DISEASE
     Route: 048
     Dates: start: 20121222

REACTIONS (1)
  - Intestinal stenosis [Recovered/Resolved]
